FAERS Safety Report 21568047 (Version 1)
Quarter: 2022Q4

REPORT INFORMATION
  Report Type: Spontaneous
  Country: US (occurrence: US)
  Receive Date: 20221108
  Receipt Date: 20221108
  Transmission Date: 20230113
  Serious: Yes (Death)
  Sender: FDA-Public Use
  Company Number: US-AMNEAL PHARMACEUTICALS-2022-AMRX-03220

PATIENT
  Age: 77 Year
  Sex: Female

DRUGS (3)
  1. RYTARY [Suspect]
     Active Substance: CARBIDOPA\LEVODOPA
     Indication: Parkinson^s disease
     Dosage: 61.25-245MG TO TAKE 1 CAPSULE BY MOUTH FOUR TIMES DAILY AND 23.75-95MG TAKE 1 CAPSULE BY MOUTH FOUR
     Route: 048
     Dates: start: 20200928
  2. RYTARY [Suspect]
     Active Substance: CARBIDOPA\LEVODOPA
     Dosage: 23.75-95 MG
     Route: 048
  3. RYTARY [Suspect]
     Active Substance: CARBIDOPA\LEVODOPA
     Dosage: 36.25-145 MG AND 61.25-245 MG CAP TAKE 1 CAPSULE BY MOUTH FOUR TIMES A DAY + TAKE 1 CAPSULE BY MOUTH
     Route: 048
     Dates: start: 20220519

REACTIONS (1)
  - Cardiac arrest [Fatal]

NARRATIVE: CASE EVENT DATE: 20221103
